FAERS Safety Report 21572710 (Version 1)
Quarter: 2022Q4

REPORT INFORMATION
  Report Type: Report from Study
  Country: US (occurrence: US)
  Receive Date: 20221109
  Receipt Date: 20221109
  Transmission Date: 20230113
  Serious: No
  Sender: FDA-Public Use
  Company Number: US-ABBVIE-22K-163-4321275-00

PATIENT
  Sex: Male

DRUGS (2)
  1. HUMIRA [Suspect]
     Active Substance: ADALIMUMAB
     Indication: Ankylosing spondylitis
     Route: 058
     Dates: start: 20211125
  2. HUMIRA [Suspect]
     Active Substance: ADALIMUMAB
     Route: 058
     Dates: start: 20211125

REACTIONS (8)
  - Musculoskeletal stiffness [Recovering/Resolving]
  - Fatigue [Unknown]
  - Insomnia [Unknown]
  - Hypoaesthesia [Not Recovered/Not Resolved]
  - Road traffic accident [Unknown]
  - Therapeutic response shortened [Unknown]
  - Headache [Not Recovered/Not Resolved]
  - Hepatitis C [Unknown]

NARRATIVE: CASE EVENT DATE: 20220101
